FAERS Safety Report 9265202 (Version 1)
Quarter: 2013Q2

REPORT INFORMATION
  Report Type: Spontaneous
  Country: US (occurrence: US)
  Receive Date: 20130501
  Receipt Date: 20130501
  Transmission Date: 20140414
  Serious: Yes (Other)
  Sender: FDA-Public Use
  Company Number: PHHY2013US040061

PATIENT
  Age: 4 Year
  Sex: Male

DRUGS (1)
  1. GENTEAL [Suspect]
     Dosage: 2 DRP, DAILY

REACTIONS (1)
  - Eye pain [Unknown]
